FAERS Safety Report 6136253-1 (Version None)
Quarter: 2009Q1

REPORT INFORMATION
  Report Type: 
  Country: None (occurrence: None)
  Receive Date: 20090330
  Receipt Date: 20090325
  Transmission Date: 20090719
  Serious: Yes (Other)
  Sender: FDA-Public Use
  Company Number: US-BIOGENIDEC-2008BI010567

PATIENT
  Age: 34 Year
  Sex: Female

DRUGS (2)
  1. AVONEX [Suspect]
     Indication: MULTIPLE SCLEROSIS
     Dosage: DOSE UNIT:30
     Route: 042
     Dates: start: 20070209, end: 20080101
  2. AVONEX [Suspect]
     Route: 042
     Dates: start: 20081217

REACTIONS (1)
  - FAILED INDUCTION OF LABOUR [None]
